FAERS Safety Report 7000711-8 (Version None)
Quarter: 2010Q3

REPORT INFORMATION
  Report Type: 
  Country: None (occurrence: None)
  Receive Date: 20100920
  Receipt Date: 20100527
  Transmission Date: 20110219
  Serious: No
  Sender: FDA-Public Use
  Company Number: US-ASTRAZENECA-2010SE24655

PATIENT
  Age: 49 Year
  Sex: Male
  Weight: 89.8 kg

DRUGS (6)
  1. SEROQUEL [Suspect]
     Indication: OBSESSIVE-COMPULSIVE DISORDER
     Route: 048
  2. SEROQUEL [Suspect]
     Indication: SCHIZOAFFECTIVE DISORDER
     Route: 048
  3. COUMADIN [Concomitant]
  4. LUBROX [Concomitant]
  5. DEPAKOTE [Concomitant]
  6. VISTARIL [Concomitant]

REACTIONS (3)
  - LIPIDS INCREASED [None]
  - TREATMENT NONCOMPLIANCE [None]
  - WEIGHT INCREASED [None]
